FAERS Safety Report 4663797-1 (Version None)
Quarter: 2005Q2

REPORT INFORMATION
  Report Type: 
  Country: None (occurrence: None)
  Receive Date: 20050516
  Receipt Date: 20050504
  Transmission Date: 20051028
  Serious: Yes (Death, Life-Threatening, Hospitalization, Disabling)
  Sender: FDA-Public Use
  Company Number: 2005071727

PATIENT
  Age: 66 Year
  Sex: Female
  Weight: 72.5755 kg

DRUGS (3)
  1. BEXTRA [Suspect]
     Indication: ARTHRALGIA
     Dosage: 1 TABLET (2 IN 1 D), ORAL
     Route: 048
     Dates: start: 20040101
  2. CYCLOBENZAPRINE HCL [Concomitant]
  3. MELOXICAM [Concomitant]

REACTIONS (5)
  - BRAIN DEATH [None]
  - CEREBRAL HAEMORRHAGE [None]
  - CEREBROVASCULAR ACCIDENT [None]
  - PAIN [None]
  - THROMBOSIS [None]
